FAERS Safety Report 10022995 (Version 1)
Quarter: 2014Q1

REPORT INFORMATION
  Report Type: Spontaneous
  Country: US (occurrence: US)
  Receive Date: 20140319
  Receipt Date: 20140319
  Transmission Date: 20141002
  Serious: No
  Sender: FDA-Public Use
  Company Number: US-SA-2014SA019714

PATIENT
  Age: 78 Year
  Sex: Male

DRUGS (1)
  1. LEUKINE [Suspect]
     Indication: PROSTATE CANCER
     Dosage: DOSE: 40 UNITS
     Route: 065
     Dates: start: 2012

REACTIONS (2)
  - Prostatic specific antigen increased [Not Recovered/Not Resolved]
  - Off label use [Unknown]
